FAERS Safety Report 25648424 (Version 1)
Quarter: 2025Q3

REPORT INFORMATION
  Report Type: Spontaneous
  Country: US (occurrence: US)
  Receive Date: 20250806
  Receipt Date: 20250806
  Transmission Date: 20251021
  Serious: Yes (Other)
  Sender: AUROBINDO
  Company Number: US-AUROBINDO-AUR-APL-2025-039882

PATIENT
  Age: 80 Year
  Sex: Female

DRUGS (1)
  1. DEXAMETHASONE [Suspect]
     Active Substance: DEXAMETHASONE
     Indication: Differentiation syndrome
     Route: 065

REACTIONS (10)
  - Myocardial ischaemia [Unknown]
  - Respiratory failure [Unknown]
  - Liver injury [Unknown]
  - Hyperbilirubinaemia [Unknown]
  - Renal failure [Unknown]
  - Shock [Recovered/Resolved]
  - Multiple organ dysfunction syndrome [Unknown]
  - Unresponsive to stimuli [Unknown]
  - Withdrawal syndrome [Unknown]
  - Hypotension [Recovered/Resolved]
